FAERS Safety Report 5158284-0 (Version None)
Quarter: 2006Q4

REPORT INFORMATION
  Report Type: 
  Country: None (occurrence: None)
  Receive Date: 20061121
  Receipt Date: 20061121
  Transmission Date: 20070319
  Serious: Yes (Other)
  Sender: FDA-Public Use
  Company Number: None

PATIENT
  Age: 83 Year
  Sex: Male

DRUGS (10)
  1. ANGIOMAX [Suspect]
     Indication: ANGINA UNSTABLE
     Dates: start: 20050812, end: 20050812
  2. METOPROLOL SUCCINATE [Concomitant]
  3. FOLATE [Concomitant]
  4. VITAMIN B COMPLEX CAP [Concomitant]
  5. ASPIRIN [Concomitant]
  6. NITROGLYCERIN [Concomitant]
  7. PRILOSEC [Concomitant]
  8. LIPITOR [Concomitant]
  9. PREDNISONE TAPER [Concomitant]
  10. DARVOCET [Concomitant]

REACTIONS (1)
  - HAEMATOMA [None]
